FAERS Safety Report 25622744 (Version 2)
Quarter: 2025Q3

REPORT INFORMATION
  Report Type: Spontaneous
  Country: EU (occurrence: EU)
  Receive Date: 20250730
  Receipt Date: 20250807
  Transmission Date: 20251020
  Serious: Yes (Other)
  Sender: APELLIS PHARMACEUTICALS
  Company Number: EU-BIOVITRUM-2024-FR-008168

PATIENT

DRUGS (2)
  1. PEGCETACOPLAN [Suspect]
     Active Substance: PEGCETACOPLAN
     Indication: C3 glomerulopathy
     Route: 058
  2. PEGCETACOPLAN [Suspect]
     Active Substance: PEGCETACOPLAN
     Route: 058
     Dates: end: 202506

REACTIONS (10)
  - Off label use [Not Recovered/Not Resolved]
  - Nephrotic syndrome [Unknown]
  - Acute kidney injury [Recovered/Resolved]
  - Dehydration [Unknown]
  - Hypoglycaemia [Unknown]
  - Type 2 diabetes mellitus [Unknown]
  - Immune-complex membranoproliferative glomerulonephritis [Unknown]
  - Obesity [Unknown]
  - Condition aggravated [Unknown]
  - C3 glomerulopathy [Unknown]
